FAERS Safety Report 19722574 (Version 1)
Quarter: 2021Q3

REPORT INFORMATION
  Report Type: Spontaneous
  Country: CH (occurrence: CH)
  Receive Date: 20210819
  Receipt Date: 20210819
  Transmission Date: 20211014
  Serious: Yes (Hospitalization, Other)
  Sender: FDA-Public Use
  Company Number: CH-AMERICAN REGENT INC-2021002185

PATIENT
  Age: 39 Year
  Sex: Female

DRUGS (3)
  1. FERINJECT [Suspect]
     Active Substance: FERRIC CARBOXYMALTOSE
     Dosage: 500 MG (2 CYCLICAL)
     Dates: start: 20210608, end: 20210608
  2. PREDNISONE. [Concomitant]
     Active Substance: PREDNISONE
     Indication: PRODUCT USED FOR UNKNOWN INDICATION
     Dosage: 20 MILLIGRAM PER DECILITRE
     Route: 065
  3. FERINJECT [Suspect]
     Active Substance: FERRIC CARBOXYMALTOSE
     Indication: IRON DEFICIENCY ANAEMIA
     Dosage: 500 MG (2 CYCLICAL)
     Dates: start: 20210525, end: 20210525

REACTIONS (12)
  - Seizure [Unknown]
  - Helicobacter infection [Unknown]
  - Coeliac disease [Unknown]
  - Whipple^s disease [Unknown]
  - Migraine [Unknown]
  - Hypophosphataemia [Recovering/Resolving]
  - Limb discomfort [Unknown]
  - Gait disturbance [Unknown]
  - Mucosal inflammation [Unknown]
  - Muscular weakness [Unknown]
  - Renal disorder [Unknown]
  - Malabsorption [Unknown]

NARRATIVE: CASE EVENT DATE: 202106
